FAERS Safety Report 7108427-4 (Version None)
Quarter: 2010Q4

REPORT INFORMATION
  Report Type: 
  Country: None (occurrence: None)
  Receive Date: 20101117
  Receipt Date: 20101108
  Transmission Date: 20110411
  Serious: Yes (Other)
  Sender: FDA-Public Use
  Company Number: B0667740A

PATIENT
  Sex: Female

DRUGS (4)
  1. PAXIL [Suspect]
     Indication: ANXIETY
     Dosage: 5MG PER DAY
     Route: 048
     Dates: start: 20090207, end: 20090313
  2. PAXIL [Suspect]
     Dosage: 10MG PER DAY
     Route: 048
     Dates: start: 20090313, end: 20090330
  3. SOLANAX [Concomitant]
     Indication: ANXIETY
     Dosage: 1.2MG PER DAY
     Route: 048
     Dates: start: 20090207
  4. LENDORMIN [Concomitant]
     Indication: INSOMNIA
     Dosage: .25MG PER DAY
     Route: 048
     Dates: start: 20090207

REACTIONS (4)
  - ACTIVATION SYNDROME [None]
  - AGGRESSION [None]
  - HYPERPHAGIA [None]
  - HYPOMANIA [None]
